FAERS Safety Report 16098794 (Version 1)
Quarter: 2019Q1

REPORT INFORMATION
  Report Type: Spontaneous
  Country: NL (occurrence: NL)
  Receive Date: 20190321
  Receipt Date: 20190321
  Transmission Date: 20190418
  Serious: Yes (Hospitalization)
  Sender: FDA-Public Use
  Company Number: NL-ABBVIE-19P-114-2713036-00

PATIENT
  Age: 33 Year
  Sex: Female
  Weight: 68 kg

DRUGS (1)
  1. LUCRIN PDS DEPOT [Suspect]
     Active Substance: LEUPROLIDE ACETATE
     Indication: GASTROINTESTINAL DISORDER
     Dosage: 30 MILLIGRAM
     Route: 065
     Dates: start: 20181030

REACTIONS (7)
  - Injection site pain [Unknown]
  - Abdominal distension [Unknown]
  - Chills [Unknown]
  - Muscular weakness [Unknown]
  - Dyspnoea [Unknown]
  - Pyrexia [Unknown]
  - Swelling [Unknown]

NARRATIVE: CASE EVENT DATE: 20181221
